FAERS Safety Report 5375712-6 (Version None)
Quarter: 2007Q2

REPORT INFORMATION
  Report Type: 
  Country: None (occurrence: None)
  Receive Date: 20070628
  Receipt Date: 20070620
  Transmission Date: 20071010
  Serious: Yes (Life-Threatening, Hospitalization)
  Sender: FDA-Public Use
  Company Number: 2007-02945

PATIENT
  Age: 43 Year
  Sex: Female

DRUGS (4)
  1. TRELSTAR DEPOT [Suspect]
     Indication: BREAST CANCER
     Dosage: 3.75 MG, Q 4W, INTRAMUSCULAR
     Route: 030
     Dates: start: 20070524
  2. TRELSTAR DEPOT [Suspect]
     Indication: OESTROGEN RECEPTOR ASSAY POSITIVE
     Dosage: 3.75 MG, Q 4W, INTRAMUSCULAR
     Route: 030
     Dates: start: 20070524
  3. TRELSTAR DEPOT [Suspect]
     Indication: PROGESTERONE RECEPTOR ASSAY POSITIVE
     Dosage: 3.75 MG, Q 4W, INTRAMUSCULAR
     Route: 030
     Dates: start: 20070524
  4. CHEMOTHERAPY (CYCLOPHOSPHAMIDE/DOXORUBICIN/FLUOROURACIL)() [Suspect]
     Dates: start: 20070524

REACTIONS (5)
  - CEREBRAL INFARCTION [None]
  - CEREBROVASCULAR ACCIDENT [None]
  - DEHYDRATION [None]
  - HYPERVISCOSITY SYNDROME [None]
  - VOMITING [None]
